FAERS Safety Report 20751227 (Version 1)
Quarter: 2022Q2

REPORT INFORMATION
  Report Type: Report from Study
  Country: US (occurrence: US)
  Receive Date: 20220426
  Receipt Date: 20220426
  Transmission Date: 20220720
  Serious: Yes (Hospitalization)
  Sender: FDA-Public Use
  Company Number: US-BAYER-2022A059799

PATIENT
  Age: 47 Year
  Sex: Male

DRUGS (1)
  1. ADEMPAS [Suspect]
     Active Substance: RIOCIGUAT
     Dosage: 1 MG
     Dates: start: 20220324, end: 20220422

REACTIONS (2)
  - Hospitalisation [Not Recovered/Not Resolved]
  - Hypotension [None]

NARRATIVE: CASE EVENT DATE: 20220413
